FAERS Safety Report 20728173 (Version 1)
Quarter: 2022Q2

REPORT INFORMATION
  Report Type: Spontaneous
  Country: US (occurrence: US)
  Receive Date: 20220420
  Receipt Date: 20220420
  Transmission Date: 20220720
  Serious: Yes (Life-Threatening, Other)
  Sender: FDA-Public Use
  Company Number: US-BRACCO-2022US01448

PATIENT
  Age: 68 Year

DRUGS (12)
  1. LUMASON [Suspect]
     Active Substance: SULFUR HEXAFLUORIDE
     Indication: Diagnostic procedure
     Dosage: 2 ML, SINGLE
     Dates: start: 20220412, end: 20220412
  2. LUMASON [Suspect]
     Active Substance: SULFUR HEXAFLUORIDE
     Indication: Diagnostic procedure
     Dosage: 2 ML, SINGLE
     Dates: start: 20220412, end: 20220412
  3. LUMASON [Suspect]
     Active Substance: SULFUR HEXAFLUORIDE
     Indication: Diagnostic procedure
     Dosage: 2 ML, SINGLE
     Dates: start: 20220412, end: 20220412
  4. ACETAMINOPHEN [Concomitant]
     Active Substance: ACETAMINOPHEN
     Dosage: 650 MG, Q 6 HRS
  5. AMIODARONE [Concomitant]
     Active Substance: AMIODARONE
     Dosage: 400 MG ONE DOSE
  6. NEXTERONE [Concomitant]
     Active Substance: AMIODARONE HYDROCHLORIDE
     Dosage: 50 MG/100 ML ONE DOSE
  7. ANGIOMAX [Concomitant]
     Active Substance: BIVALIRUDIN
     Dosage: 250 MG CONTINUOUS
  8. CAPTOPRIL [Concomitant]
     Active Substance: CAPTOPRIL
     Dosage: 12.5 MG THREE TIMES
  9. CEFEPIME [Concomitant]
     Active Substance: CEFEPIME HYDROCHLORIDE
     Dosage: 1 G ONE DOSE
  10. DIGOXIN [Concomitant]
     Active Substance: DIGOXIN
     Dosage: 125 MG QD
  11. DOBUTAMINE [Concomitant]
     Active Substance: DOBUTAMINE HYDROCHLORIDE
     Dosage: 100 MG/250 ML CONTINUOUS
  12. LIDOCAINE [Concomitant]
     Active Substance: LIDOCAINE
     Dosage: Q 12  HRS
     Route: 023

REACTIONS (3)
  - Unresponsive to stimuli [Recovered/Resolved]
  - Seizure [Recovered/Resolved]
  - Pulse absent [Recovered/Resolved]

NARRATIVE: CASE EVENT DATE: 20220412
